FAERS Safety Report 15863782 (Version 1)
Quarter: 2019Q1

REPORT INFORMATION
  Report Type: Spontaneous
  Country: US (occurrence: US)
  Receive Date: 20190124
  Receipt Date: 20190124
  Transmission Date: 20190417
  Serious: No
  Sender: FDA-Public Use
  Company Number: US-ENDO PHARMACEUTICALS INC-2018-035318

PATIENT
  Age: 70 Year
  Sex: Male
  Weight: 99.32 kg

DRUGS (1)
  1. TESTOSTERONE. [Suspect]
     Active Substance: TESTOSTERONE
     Indication: BLOOD TESTOSTERONE DECREASED
     Dosage: 70 MG, UNKNOWN (7 PUMPS APPLIED TO INNER THIGH)
     Route: 061
     Dates: start: 20180412, end: 20180414

REACTIONS (4)
  - Dizziness [Recovered/Resolved]
  - Application site pain [Recovered/Resolved]
  - Nausea [Recovered/Resolved]
  - Application site rash [Recovered/Resolved]

NARRATIVE: CASE EVENT DATE: 20180412
